FAERS Safety Report 5157275-3 (Version None)
Quarter: 2006Q4

REPORT INFORMATION
  Report Type: 
  Country: None (occurrence: None)
  Receive Date: 20061127
  Receipt Date: 20061019
  Transmission Date: 20070319
  Serious: Yes (Hospitalization, Other)
  Sender: FDA-Public Use
  Company Number: PHBS2006BE16432

PATIENT
  Age: 63 Year
  Sex: Male

DRUGS (6)
  1. DECAPEPTYL [Concomitant]
     Route: 065
     Dates: start: 20040101
  2. ANDROCUR [Concomitant]
     Dosage: UNK, UNK
     Route: 065
     Dates: start: 20040101, end: 20041201
  3. RADIOTHERAPY [Concomitant]
     Dosage: AT D8
     Route: 065
  4. CASODEX [Concomitant]
     Dosage: UNK, UNK
     Route: 065
     Dates: start: 20041201, end: 20051201
  5. ZOMETA [Suspect]
     Indication: PROSTATE CANCER METASTATIC
     Dosage: 4 MG, EVERY MONTH
     Route: 065
     Dates: start: 20040101, end: 20060601
  6. ZOMETA [Suspect]
     Dosage: 4 MG, EVERY MONTH
     Route: 042
     Dates: start: 20060801, end: 20060901

REACTIONS (10)
  - ACTINOMYCOSIS [None]
  - BACK PAIN [None]
  - BONE PAIN [None]
  - CANDIDIASIS [None]
  - FISTULA [None]
  - MALIGNANT NEOPLASM PROGRESSION [None]
  - OSTEONECROSIS [None]
  - STOMATITIS [None]
  - TOOTH EXTRACTION [None]
  - WOUND INFECTION [None]
